FAERS Safety Report 10245119 (Version 1)
Quarter: 2014Q2

REPORT INFORMATION
  Report Type: Spontaneous
  Country: FR (occurrence: FR)
  Receive Date: 20140618
  Receipt Date: 20140618
  Transmission Date: 20141212
  Serious: Yes (Hospitalization, Disabling)
  Sender: FDA-Public Use
  Company Number: FR-PFIZER INC-2014163530

PATIENT
  Age: 35 Year
  Sex: Female

DRUGS (16)
  1. RAPAMUNE [Suspect]
     Indication: IMMUNOSUPPRESSANT DRUG THERAPY
     Dosage: UNKNOWN DOSE (STRENGTH :1 MG)
     Route: 048
     Dates: start: 20140211, end: 201404
  2. CORTANCYL [Suspect]
     Indication: IMMUNOSUPPRESSANT DRUG THERAPY
     Dosage: UNK
     Route: 048
     Dates: start: 201311
  3. CORTANCYL [Suspect]
     Dosage: 1.5 MG/KG, UNK
     Route: 048
     Dates: start: 20140307
  4. CORTANCYL [Suspect]
     Dosage: 1 MG/KG, UNK
     Route: 048
     Dates: start: 20140319
  5. ENTOCORT [Suspect]
     Indication: IMMUNOSUPPRESSANT DRUG THERAPY
     Dosage: UNK
     Route: 048
     Dates: start: 2014, end: 201404
  6. NEORAL [Suspect]
     Indication: PROPHYLAXIS
     Dosage: 2 DF, DAILY
     Dates: start: 201311, end: 201404
  7. METHOTREXATE [Concomitant]
     Indication: IMMUNOSUPPRESSANT DRUG THERAPY
     Dosage: UNK
     Dates: start: 20140125
  8. OXACILLIN [Concomitant]
     Dosage: UNK
  9. BACTRIM FORTE [Concomitant]
     Dosage: UNK
  10. ZELITREX [Concomitant]
     Dosage: UNK
  11. NOXAFIL [Concomitant]
     Dosage: UNK
  12. FOLINORAL [Concomitant]
     Dosage: UNK
  13. MAG 2 [Concomitant]
     Dosage: UNK
  14. DIFFU-K [Concomitant]
     Dosage: UNK
  15. MOTILIUM [Concomitant]
     Dosage: UNK
  16. CACIT D3 [Concomitant]
     Dosage: UNK

REACTIONS (2)
  - Myopathy [Recovering/Resolving]
  - Thrombotic microangiopathy [Unknown]
